FAERS Safety Report 12481870 (Version 4)
Quarter: 2016Q3

REPORT INFORMATION
  Report Type: Spontaneous
  Country: US (occurrence: US)
  Receive Date: 20160620
  Receipt Date: 20160804
  Transmission Date: 20161109
  Serious: Yes (Other)
  Sender: FDA-Public Use
  Company Number: PHEH2016US014788

PATIENT
  Age: 7 Year
  Sex: Female
  Weight: 21.9 kg

DRUGS (11)
  1. OXCARBAZEPINE. [Suspect]
     Active Substance: OXCARBAZEPINE
     Indication: EPILEPSY
     Dosage: 6 ML, BID
     Route: 065
     Dates: start: 201510
  2. FELBATOL [Suspect]
     Active Substance: FELBAMATE
     Indication: PARTIAL SEIZURES
     Route: 065
  3. OXCARBAZEPINE. [Suspect]
     Active Substance: OXCARBAZEPINE
     Indication: PARTIAL SEIZURES
     Dosage: 8 ML, UNK
     Route: 065
  4. FELBATOL [Suspect]
     Active Substance: FELBAMATE
     Dosage: 1530 MG, QD (720MG AM, 450MG NOON, 360MG PM )
     Route: 048
     Dates: start: 20160224
  5. FELBAMATE. [Concomitant]
     Active Substance: FELBAMATE
     Indication: SEIZURE
     Dosage: 6ML QAM 4ML AT NOON AND 3 5 PM
     Route: 065
  6. TRILEPTAL [Suspect]
     Active Substance: OXCARBAZEPINE
     Indication: EPILEPSY
     Dosage: UNK
     Route: 065
     Dates: start: 201510
  7. MIDAZOLAM [Suspect]
     Active Substance: MIDAZOLAM\MIDAZOLAM HYDROCHLORIDE
     Dosage: 6 MG, PRN
     Route: 048
     Dates: start: 20151109
  8. FIBER [Concomitant]
     Active Substance: PSYLLIUM HUSK
     Indication: CONSTIPATION
     Dosage: UNK
     Route: 065
  9. TRILEPTAL [Suspect]
     Active Substance: OXCARBAZEPINE
     Dosage: 1050 MG, QD ((450MG AM, 600MG PM) )
     Route: 048
     Dates: start: 20151109
  10. OXCARBAZEPINE. [Suspect]
     Active Substance: OXCARBAZEPINE
     Dosage: 6 ML, UNK
     Route: 065
  11. MIDAZOLAM [Suspect]
     Active Substance: MIDAZOLAM\MIDAZOLAM HYDROCHLORIDE
     Indication: SEIZURE
     Dosage: 3 ML, UNK
     Route: 065

REACTIONS (4)
  - Seizure [Recovered/Resolved]
  - Generalised tonic-clonic seizure [Recovered/Resolved]
  - Drug ineffective [Unknown]
  - Partial seizures [Recovered/Resolved]

NARRATIVE: CASE EVENT DATE: 20160610
